FAERS Safety Report 25506971 (Version 1)
Quarter: 2025Q3

REPORT INFORMATION
  Report Type: Spontaneous
  Country: EU (occurrence: EU)
  Receive Date: 20250702
  Receipt Date: 20250702
  Transmission Date: 20251020
  Serious: Yes (Death, Other)
  Sender: SANDOZ
  Company Number: EU-NOVPHSZ-PHHY2017DE155174

PATIENT
  Age: 30 Year
  Sex: Male

DRUGS (11)
  1. ALEMTUZUMAB [Suspect]
     Active Substance: ALEMTUZUMAB
     Route: 065
  2. ALEMTUZUMAB [Suspect]
     Active Substance: ALEMTUZUMAB
     Indication: Acute lymphocytic leukaemia
     Route: 065
  3. THYMOCYTE IMMUNE GLOBULIN NOS [Suspect]
     Active Substance: THYMOCYTE IMMUNE GLOBULIN NOS
     Indication: Allogenic stem cell transplantation
     Route: 065
  4. THYMOCYTE IMMUNE GLOBULIN NOS [Suspect]
     Active Substance: THYMOCYTE IMMUNE GLOBULIN NOS
     Indication: Acute lymphocytic leukaemia
  5. THYMOCYTE IMMUNE GLOBULIN NOS [Suspect]
     Active Substance: THYMOCYTE IMMUNE GLOBULIN NOS
     Indication: Bone marrow conditioning regimen
  6. CYCLOPHOSPHAMIDE [Suspect]
     Active Substance: CYCLOPHOSPHAMIDE
     Indication: Allogenic stem cell transplantation
     Route: 065
  7. CYCLOPHOSPHAMIDE [Suspect]
     Active Substance: CYCLOPHOSPHAMIDE
     Indication: Acute lymphocytic leukaemia
  8. FLUDARABINE [Suspect]
     Active Substance: FLUDARABINE PHOSPHATE
     Indication: Allogenic stem cell transplantation
     Route: 065
  9. FLUDARABINE [Suspect]
     Active Substance: FLUDARABINE PHOSPHATE
     Indication: Acute lymphocytic leukaemia
  10. FLUDARABINE [Suspect]
     Active Substance: FLUDARABINE PHOSPHATE
     Indication: Bone marrow conditioning regimen
  11. LEMTRADA [Suspect]
     Active Substance: ALEMTUZUMAB
     Indication: Acute lymphocytic leukaemia
     Route: 065

REACTIONS (14)
  - Encephalitis viral [Fatal]
  - Respiratory paralysis [Fatal]
  - Catatonia [Fatal]
  - Loss of consciousness [Fatal]
  - Apathy [Fatal]
  - Coma [Fatal]
  - Apnoea [Fatal]
  - Muscular weakness [Fatal]
  - Encephalitis [Fatal]
  - Coronavirus infection [Fatal]
  - BK virus infection [Fatal]
  - Cytomegalovirus infection reactivation [Fatal]
  - Viral haemorrhagic cystitis [Unknown]
  - Off label use [Unknown]
